FAERS Safety Report 7277414-8 (Version None)
Quarter: 2010Q4

REPORT INFORMATION
  Report Type: 
  Country: None (occurrence: None)
  Receive Date: 20101201
  Receipt Date: 20091008
  Transmission Date: 20110411
  Serious: Yes (Other)
  Sender: FDA-Public Use
  Company Number: 288260

PATIENT
  Age: 68 Year
  Sex: Female
  Weight: 83 kg

DRUGS (13)
  1. NOVOLOG [Suspect]
     Indication: INSULIN-REQUIRING TYPE 2 DIABETES MELLITUS
     Dosage: 10 IU, (WITH MEALS)
     Dates: start: 20020101
  2. NOVOLOG MIX 70/30 [Suspect]
     Indication: INSULIN-REQUIRING TYPE 2 DIABETES MELLITUS
     Dosage: 20 UNITS AM, 16 UNITS PM, SUBCUTANEOUS
     Route: 058
  3. METOPROLOL TARTRATE [Concomitant]
  4. SIMVASTATIN [Concomitant]
  5. HYDRALAZINE HCL [Concomitant]
  6. FUROSEMIDE [Concomitant]
  7. ISOSORBIDE (ISOSORBIDE) [Concomitant]
  8. LEXAPRO [Concomitant]
  9. SPIRONOLACTONE [Concomitant]
  10. ENALAPRIL MALEATE [Concomitant]
  11. LASIX [Concomitant]
  12. ASPIRIN [Concomitant]
  13. PLAVIX [Concomitant]

REACTIONS (7)
  - BLOOD GLUCOSE DECREASED [None]
  - BLOOD GLUCOSE INCREASED [None]
  - BLOOD POTASSIUM INCREASED [None]
  - DISORIENTATION [None]
  - FLUID RETENTION [None]
  - HYPERTENSION [None]
  - HYPOGLYCAEMIC UNCONSCIOUSNESS [None]
